FAERS Safety Report 15352219 (Version 1)
Quarter: 2018Q3

REPORT INFORMATION
  Report Type: Spontaneous
  Country: US (occurrence: US)
  Receive Date: 20180905
  Receipt Date: 20180905
  Transmission Date: 20181010
  Serious: No
  Sender: FDA-Public Use
  Company Number: US-GILEAD-2018-0359602

PATIENT
  Age: 35 Year
  Sex: Male
  Weight: 77.98 kg

DRUGS (1)
  1. TRUVADA [Suspect]
     Active Substance: EMTRICITABINE\TENOFOVIR DISOPROXIL FUMARATE
     Indication: PROPHYLAXIS AGAINST HIV INFECTION
     Dosage: 133 MG, UNK
     Route: 065

REACTIONS (1)
  - Product availability issue [Recovered/Resolved]
